FAERS Safety Report 5365546-0 (Version None)
Quarter: 2007Q2

REPORT INFORMATION
  Report Type: 
  Country: None (occurrence: None)
  Receive Date: 20070621
  Receipt Date: 20070615
  Transmission Date: 20071010
  Serious: Yes (Life-Threatening)
  Sender: FDA-Public Use
  Company Number: B0472458A

PATIENT
  Age: 82 Year
  Sex: Female
  Weight: 37 kg

DRUGS (18)
  1. REQUIP [Suspect]
     Indication: PARKINSON'S DISEASE
     Route: 048
     Dates: start: 20070308, end: 20070523
  2. EVAMYL [Concomitant]
     Route: 048
  3. CLARITHROMYCIN [Concomitant]
     Indication: INFECTION PROPHYLAXIS
     Dosage: 400MG PER DAY
     Route: 048
  4. OMEPRAL [Concomitant]
     Dosage: 10MG PER DAY
     Route: 065
  5. ONEALFA [Concomitant]
     Indication: OSTEOPOROSIS
     Dosage: .5MCG PER DAY
     Route: 048
  6. CYANOCOBALAMIN [Concomitant]
     Route: 065
  7. GASMOTIN [Concomitant]
     Route: 048
  8. URSO 250 [Concomitant]
     Indication: CHOLELITHIASIS
     Dosage: 300MG PER DAY
     Route: 048
  9. UNKNOWN [Concomitant]
     Route: 065
  10. BIOFERMIN R [Concomitant]
     Dosage: 3G PER DAY
     Route: 048
  11. TANNALBIN [Concomitant]
     Dosage: 3G PER DAY
     Route: 048
  12. TOLEDOMIN [Concomitant]
     Route: 048
  13. SYMMETREL [Concomitant]
     Route: 048
  14. EC DOPARL [Concomitant]
     Route: 048
  15. FOIPAN [Concomitant]
     Dosage: 300MG PER DAY
     Route: 048
  16. NEUQUINON [Concomitant]
     Route: 048
  17. SERMION [Concomitant]
     Indication: PARKINSON'S DISEASE
     Dosage: 200MG PER DAY
     Route: 048
  18. MUCOSTA [Concomitant]
     Route: 048

REACTIONS (2)
  - INTERSTITIAL LUNG DISEASE [None]
  - PYREXIA [None]
